FAERS Safety Report 7285674-2 (Version None)
Quarter: 2011Q1

REPORT INFORMATION
  Report Type: 
  Country: None (occurrence: None)
  Receive Date: 20110210
  Receipt Date: 20110204
  Transmission Date: 20110831
  Serious: Yes (Death)
  Sender: FDA-Public Use
  Company Number: B0692962A

PATIENT
  Sex: Female
  Weight: 42 kg

DRUGS (4)
  1. PHENOBAL [Concomitant]
     Indication: EPILEPSY
     Dosage: 40MG PER DAY
     Route: 048
     Dates: start: 20100401
  2. LAMICTAL [Suspect]
     Indication: EPILEPSY
     Dosage: 150MG PER DAY
     Route: 048
     Dates: start: 20091007
  3. HALOPERIDOL [Concomitant]
     Indication: HYPERKINESIA
     Dosage: .3MG PER DAY
     Route: 048
     Dates: start: 20090401
  4. TEGRETOL [Concomitant]
     Indication: EPILEPSY
     Dosage: 400MG PER DAY
     Route: 048
     Dates: start: 20080901

REACTIONS (4)
  - CONVULSION [None]
  - GRAND MAL CONVULSION [None]
  - RESPIRATORY DISORDER [None]
  - CARDIAC FAILURE ACUTE [None]
